FAERS Safety Report 8111985 (Version 6)
Quarter: 2012Q4

REPORT INFORMATION
  Report Type: 
  Country: JP (occurrence: JP)
  Receive Date: 20110829
  Receipt Date: 20121024
  Transmission Date: 20130627
  Serious: Yes (Hospitalization, Disabling)
  Sender: FDA-Public Use
  Company Number: JP-B.I. PHARMACEUTICALS,INC./RIDGEFIELD-2011-BP-20592NB

PATIENT
  Age: 82 Year
  Sex: Female
  Weight: 43 kg

DRUGS (12)
  1. PRAZAXA [Suspect]
     Indication: ATRIAL FIBRILLATION
     Dosage: 300 mg
     Route: 048
     Dates: start: 20110409
  2. DIGOSIN [Concomitant]
     Indication: ATRIAL FIBRILLATION
     Dosage: 0.125 mg
     Route: 048
     Dates: end: 20110820
  3. TENORMIN [Concomitant]
     Indication: ATRIAL FIBRILLATION
     Dosage: 25 mg
     Route: 048
  4. ALDACTONE A [Concomitant]
     Indication: HYPERTENSION
     Dosage: 50 mg
     Route: 048
     Dates: end: 20110820
  5. FERROMIA [Concomitant]
     Indication: ANAEMIA
     Dosage: 50 mg
     Route: 048
     Dates: start: 20080313, end: 20110820
  6. GASMOTIN [Concomitant]
     Indication: GASTRITIS
     Dosage: 10 mg
     Route: 048
     Dates: start: 20110802, end: 20110820
  7. MAGMITT [Concomitant]
     Indication: CONSTIPATION
     Dosage: 1320 mg
     Route: 048
     Dates: start: 20101105, end: 20110820
  8. EVAMYL [Concomitant]
     Indication: INSOMNIA
     Dosage: 1 mg
     Route: 048
     Dates: end: 20110820
  9. MYSLEE [Concomitant]
     Indication: INSOMNIA
     Dosage: 10 mg
     Route: 048
     Dates: start: 20101105, end: 20110820
  10. PURSENNID [Concomitant]
     Indication: CONSTIPATION
     Dosage: 24 mg
     Route: 048
     Dates: start: 20101201, end: 20110820
  11. PLETAAL [Concomitant]
     Dosage: 2 RT
     Route: 065
  12. OMEPRAL [Concomitant]
     Dosage: 20 mg
     Route: 065

REACTIONS (4)
  - Cerebral infarction [Recovered/Resolved with Sequelae]
  - Drug ineffective [Unknown]
  - Urinary tract infection [Unknown]
  - Renal impairment [Recovered/Resolved]
